FAERS Safety Report 7347722-0 (Version None)
Quarter: 2011Q1

REPORT INFORMATION
  Report Type: 
  Country: None (occurrence: None)
  Receive Date: 20110311
  Receipt Date: 20110307
  Transmission Date: 20110831
  Serious: Yes (Other)
  Sender: FDA-Public Use
  Company Number: B0705016A

PATIENT
  Sex: Male

DRUGS (1)
  1. PAXIL [Suspect]
     Indication: PRODUCT USED FOR UNKNOWN INDICATION
     Route: 048
     Dates: start: 20101201

REACTIONS (6)
  - PRURITUS GENERALISED [None]
  - HYPOAESTHESIA [None]
  - RASH GENERALISED [None]
  - TREMOR [None]
  - EXTRAPYRAMIDAL DISORDER [None]
  - MYALGIA [None]
